FAERS Safety Report 5284958-7 (Version None)
Quarter: 2007Q2

REPORT INFORMATION
  Report Type: 
  Country: None (occurrence: None)
  Receive Date: 20070403
  Receipt Date: 20070330
  Transmission Date: 20071010
  Serious: No
  Sender: FDA-Public Use
  Company Number: 2006UW08241

PATIENT
  Age: 51 Year
  Sex: Female
  Weight: 81.4 kg

DRUGS (8)
  1. SEROQUEL [Suspect]
     Indication: BIPOLAR DISORDER
     Route: 048
     Dates: start: 19980101, end: 20020101
  2. SEROQUEL [Suspect]
     Indication: ANXIETY
     Route: 048
     Dates: start: 19980101, end: 20020101
  3. SEROQUEL [Suspect]
     Indication: DEPRESSION
     Route: 048
     Dates: start: 19980101, end: 20020101
  4. SEROQUEL [Suspect]
     Route: 048
     Dates: start: 19980101, end: 20020101
  5. SEROQUEL [Suspect]
     Route: 048
     Dates: start: 19980101, end: 20020101
  6. SEROQUEL [Suspect]
     Route: 048
     Dates: start: 19980101, end: 20020101
  7. RISPERDAL [Concomitant]
     Dates: start: 20030101
  8. ZYPREXA [Concomitant]
     Dates: start: 20030101

REACTIONS (1)
  - DIABETES MELLITUS NON-INSULIN-DEPENDENT [None]
